FAERS Safety Report 11191879 (Version 2)
Quarter: 2015Q3

REPORT INFORMATION
  Report Type: Spontaneous
  Country: JP (occurrence: None)
  Receive Date: 20150612
  Receipt Date: 20150710
  Transmission Date: 20151125
  Serious: Yes (Disabling, Other)
  Sender: FDA-Public Use
  Company Number: 2015-10949

PATIENT
  Age: 85 Year
  Sex: Male

DRUGS (2)
  1. WARFARIN (WARFARIN) [Concomitant]
     Active Substance: WARFARIN
  2. EYLEA [Suspect]
     Active Substance: AFLIBERCEPT
     Indication: AGE-RELATED MACULAR DEGENERATION
     Dosage: ONCE (OS)
     Route: 031
     Dates: start: 20140905, end: 20140905

REACTIONS (3)
  - Intraocular pressure increased [None]
  - Arteriosclerotic retinopathy [None]
  - Retinal artery occlusion [None]

NARRATIVE: CASE EVENT DATE: 20150318
